FAERS Safety Report 6961050-4 (Version None)
Quarter: 2010Q3

REPORT INFORMATION
  Report Type: 
  Country: None (occurrence: None)
  Receive Date: 20100901
  Receipt Date: 20100823
  Transmission Date: 20110219
  Serious: Yes (Other)
  Sender: FDA-Public Use
  Company Number: ES-MPIJNJ-2010-04096

PATIENT

DRUGS (5)
  1. VELCADE [Suspect]
     Indication: MULTIPLE MYELOMA
     Dosage: 1.32 MG/M2, 2/WEEK
     Route: 042
     Dates: start: 20100603
  2. VELCADE [Suspect]
     Dosage: 1.3 MG/M2, 1/WEEK
     Route: 042
  3. PREDNISONE [Concomitant]
     Indication: MULTIPLE MYELOMA
     Dosage: 100 MG, UNK
     Dates: start: 20100606
  4. MELPHALAN [Concomitant]
     Indication: MULTIPLE MYELOMA
     Dosage: 16 MG, UNK
     Dates: start: 20100603
  5. ZOLEDRONIC ACID [Concomitant]
     Dosage: UNK
     Dates: start: 20100602

REACTIONS (3)
  - COUGH [None]
  - CREPITATIONS [None]
  - OEDEMA PERIPHERAL [None]
